FAERS Safety Report 8056254-6 (Version None)
Quarter: 2012Q1

REPORT INFORMATION
  Report Type: 
  Country: None (occurrence: None)
  Receive Date: 20120119
  Receipt Date: 20120109
  Transmission Date: 20120608
  Serious: Yes (Hospitalization)
  Sender: FDA-Public Use
  Company Number: US-BAYER-2011-038738

PATIENT
  Age: 33 Year
  Sex: Female
  Weight: 118.82 kg

DRUGS (10)
  1. YASMIN [Suspect]
     Indication: CONTRACEPTION
     Dosage: UNK
     Dates: start: 20050801, end: 20060601
  2. YAZ [Suspect]
     Indication: CONTRACEPTION
     Dosage: UNK
     Dates: start: 20050801, end: 20060601
  3. PREVACID [Concomitant]
     Dosage: 30 MG, QON
     Route: 048
  4. TOPAMAX [Concomitant]
     Dosage: 25 MG, TWICE DAILY
     Route: 048
  5. DITROPAN [Concomitant]
     Dosage: UNK
     Dates: start: 20050101, end: 20060101
  6. ALLEGRA [Concomitant]
     Dosage: UNK, UNK, TWICE DAILY
     Route: 048
  7. FLUOXETINE [Concomitant]
     Indication: ANXIETY
     Dosage: UNK
     Dates: start: 20050101, end: 20060101
  8. LISINOPRIL AND HYDROCHLOROTHIAZIDE [Concomitant]
     Route: 048
  9. ALPRAZOLAM [Concomitant]
     Indication: ANXIETY
     Dosage: UNK
     Dates: start: 20050101, end: 20060101
  10. XANAX [Concomitant]
     Dosage: 0.5 MG, TID
     Route: 048

REACTIONS (3)
  - PAIN [None]
  - CEREBROVASCULAR ACCIDENT [None]
  - TRANSIENT ISCHAEMIC ATTACK [None]
